FAERS Safety Report 4478697-X (Version None)
Quarter: 2004Q3

REPORT INFORMATION
  Report Type: 
  Country: None (occurrence: None)
  Receive Date: 20040923
  Receipt Date: 20040603
  Transmission Date: 20050211
  Serious: No
  Sender: FDA-Public Use
  Company Number: USA040669233

PATIENT
  Age: 66 Year
  Sex: Female
  Weight: 46 kg

DRUGS (1)
  1. FORTEO [Suspect]
     Indication: OSTEOPOROSIS
     Dosage: 20 UG/1 DAY
     Dates: start: 20040603

REACTIONS (9)
  - ASTHENIA [None]
  - CHILLS [None]
  - COUGH [None]
  - DIZZINESS [None]
  - FATIGUE [None]
  - HEADACHE [None]
  - HEART RATE INCREASED [None]
  - PYREXIA [None]
  - THROAT IRRITATION [None]
